FAERS Safety Report 6164484-3 (Version None)
Quarter: 2009Q2

REPORT INFORMATION
  Report Type: 
  Country: None (occurrence: None)
  Receive Date: 20090422
  Receipt Date: 20090414
  Transmission Date: 20091009
  Serious: Yes (Hospitalization)
  Sender: FDA-Public Use
  Company Number: GB-JNJCH-2009010642

PATIENT
  Age: 5 Year
  Sex: Female

DRUGS (1)
  1. ACETAMINOPHEN [Suspect]
     Indication: ABDOMINAL PAIN UPPER
     Dosage: TEXT:UNSPECIFIED
     Route: 048

REACTIONS (1)
  - OVERDOSE [None]
